FAERS Safety Report 13584493 (Version 26)
Quarter: 2020Q4

REPORT INFORMATION
  Report Type: Report from Study
  Country: DE (occurrence: DE)
  Receive Date: 20170526
  Receipt Date: 20201002
  Transmission Date: 20210113
  Serious: Yes (Hospitalization, Other)
  Sender: FDA-Public Use
  Company Number: DE-BRISTOL-MYERS SQUIBB COMPANY-BMS-2017-044444

PATIENT
  Age: 64 Year
  Sex: Male

DRUGS (6)
  1. METFORMIN HYDROCHLORIDE. [Concomitant]
     Active Substance: METFORMIN HYDROCHLORIDE
     Indication: METABOLIC DISORDER
     Dosage: 2000 MILLIGRAM
     Route: 065
  2. METOPROLOL. [Concomitant]
     Active Substance: METOPROLOL
     Indication: CARDIOVASCULAR DISORDER
     Dosage: 95 MILLIGRAM
     Route: 065
     Dates: start: 20170119
  3. ENOXAPARIN [Concomitant]
     Active Substance: ENOXAPARIN
     Indication: CARDIOVASCULAR DISORDER
     Dosage: 160 MILLIGRAM
     Route: 065
     Dates: start: 20170119
  4. METHIMAZOLE. [Suspect]
     Active Substance: METHIMAZOLE
     Indication: PRODUCT USED FOR UNKNOWN INDICATION
     Dosage: UNK
     Route: 065
  5. RAMIPRIL. [Concomitant]
     Active Substance: RAMIPRIL
     Indication: CEREBROVASCULAR DISORDER
     Dosage: 10 MILLIGRAM
     Route: 065
  6. NIVOLUMAB [Suspect]
     Active Substance: NIVOLUMAB
     Indication: NON-SMALL CELL LUNG CANCER
     Dosage: 240 MILLIGRAM, Q4WK
     Route: 042
     Dates: start: 20170110

REACTIONS (12)
  - Pure white cell aplasia [Recovered/Resolved]
  - Cough [Unknown]
  - Malignant neoplasm progression [Not Recovered/Not Resolved]
  - Night sweats [Unknown]
  - Intervertebral disc operation [Unknown]
  - Radiculopathy [Recovered/Resolved]
  - Blood creatinine increased [Unknown]
  - Arthralgia [Recovering/Resolving]
  - Swelling [Recovered/Resolved with Sequelae]
  - Intervertebral disc protrusion [Recovered/Resolved]
  - Muscle spasms [Recovering/Resolving]
  - Off label use [Unknown]

NARRATIVE: CASE EVENT DATE: 20170424
